FAERS Safety Report 8558863-4 (Version None)
Quarter: 2012Q3

REPORT INFORMATION
  Report Type: 
  Country: None (occurrence: None)
  Receive Date: 20120801
  Receipt Date: 20120727
  Transmission Date: 20120928
  Serious: Yes (Disabling, Other)
  Sender: FDA-Public Use
  Company Number: PHHY2012BR044968

PATIENT
  Sex: Female

DRUGS (22)
  1. NEXIUM [Concomitant]
     Indication: PROPHYLAXIS
     Dosage: 1 DF, , FROM 2 YEARS AGO
     Route: 048
  2. VITAMIN TAB [Concomitant]
     Dosage: FROM 2 YEARS AGO
     Route: 048
  3. VITAMIN D [Concomitant]
     Dosage: FROM 2 YEARS AGO
  4. JANUVIA [Concomitant]
  5. MODAFINIL [Concomitant]
     Indication: INSOMNIA
     Dosage: 0.5 DF, DAILY
     Route: 048
  6. PROLOPA [Concomitant]
     Dosage: 4 DF, DAILY, FROM 2 YEARS AGO
     Route: 048
  7. FLUOXETINE HCL [Concomitant]
     Dosage: 1 DF, FROM 2 YEARS AGO
     Route: 048
  8. ZOLEDRONOC ACID [Suspect]
     Dosage: 5MG/100ML
     Route: 042
  9. ENABLEX [Concomitant]
     Indication: URINARY INCONTINENCE
     Dosage: 1 DF, FROM 2 YEARS AGO
     Route: 048
  10. RASILEZ [Concomitant]
     Dosage: 1 DF, FROM ONE YEAR AGO
     Route: 048
  11. EXELON [Concomitant]
     Indication: PARKINSON'S DISEASE
     Dosage: FROM 2 YEARS AGO
     Route: 062
  12. ZOLEDRONOC ACID [Suspect]
     Indication: CALCIUM METABOLISM DISORDER
     Dosage: 5MG/100ML
     Route: 042
     Dates: start: 20110501
  13. VASTAREL MR [Concomitant]
     Dosage: 2 DF, FROM 2 YEARS AGO
     Route: 048
  14. LYRICA [Concomitant]
     Indication: MYALGIA
     Dosage: 1 DF, FROM 2 YEARS AGO
     Route: 048
  15. ENDOLOFIN [Concomitant]
     Dosage: 1 DF, UNK
     Route: 048
  16. ADDERA D3 [Concomitant]
     Dosage: 10 DRP, DAILY
     Route: 048
  17. RETENIC [Concomitant]
     Indication: URINARY INCONTINENCE
     Dosage: 1 DF, FROM 2 YEARS AGO
     Route: 048
  18. MOTILIUM [Concomitant]
     Dosage: 2 DF, UNK
     Route: 048
  19. BACLOFEN [Concomitant]
     Indication: MUSCLE RELAXANT THERAPY
     Dosage: 2 DF, DAILY, FROM 2 YEARS
     Route: 048
  20. ISAR [Concomitant]
     Dosage: HALF TABLET IN THE MORNING AND HALF TABLET AT NIGHT, FROM 2 YEARS AGO
  21. DIGOXIN [Concomitant]
     Dosage: 2 DF, PER WEEK
     Route: 048
  22. CITONEURIN [Concomitant]
     Dosage: 1 DF, DAILY
     Route: 048

REACTIONS (1)
  - ABASIA [None]
